FAERS Safety Report 18758044 (Version 1)
Quarter: 2021Q1

REPORT INFORMATION
  Report Type: Spontaneous
  Country: US (occurrence: US)
  Receive Date: 20210119
  Receipt Date: 20210119
  Transmission Date: 20210419
  Serious: Yes (Death)
  Sender: FDA-Public Use
  Company Number: US-BAYER-2021-018313

PATIENT
  Age: 38 Year
  Sex: Male

DRUGS (3)
  1. SORAFENIB (RAF KINASE INHIBITOR) [Suspect]
     Active Substance: SORAFENIB
     Indication: POORLY DIFFERENTIATED THYROID CARCINOMA
  2. LENVATINIB [Concomitant]
     Active Substance: LENVATINIB
     Dosage: UNK
  3. PAZOPANIB [Concomitant]
     Active Substance: PAZOPANIB
     Dosage: UNK

REACTIONS (3)
  - Product use in unapproved indication [None]
  - Off label use [None]
  - Death [Fatal]
